FAERS Safety Report 5568426-0 (Version None)
Quarter: 2007Q4

REPORT INFORMATION
  Report Type: 
  Country: None (occurrence: None)
  Receive Date: 20071220
  Receipt Date: 20071213
  Transmission Date: 20080405
  Serious: Yes (Hospitalization)
  Sender: FDA-Public Use
  Company Number: IN-AVENTIS-200716045EU

PATIENT
  Age: 80 Year
  Sex: Female

DRUGS (6)
  1. CLEXANE [Suspect]
     Route: 058
     Dates: start: 20071204
  2. DIURETICS [Concomitant]
  3. NITROGLYCERIN [Concomitant]
  4. CARDACE-H [Concomitant]
  5. TARGOCID [Concomitant]
  6. CEFROM [Concomitant]

REACTIONS (2)
  - CEREBRAL INFARCTION [None]
  - CONVULSION [None]
